FAERS Safety Report 7125689-8 (Version None)
Quarter: 2010Q4

REPORT INFORMATION
  Report Type: 
  Country: None (occurrence: None)
  Receive Date: 20101129
  Receipt Date: 20101117
  Transmission Date: 20110411
  Serious: Yes (Death, Hospitalization)
  Sender: FDA-Public Use
  Company Number: A0879557A

PATIENT
  Age: 92 Year
  Sex: Male
  Weight: 57.3 kg

DRUGS (9)
  1. AVANDIA [Suspect]
     Indication: DIABETES MELLITUS
     Dosage: 2MG PER DAY
     Route: 048
  2. ZOLOFT [Concomitant]
  3. CLONIDINE [Concomitant]
  4. SEROQUEL [Concomitant]
  5. NAMENDA [Concomitant]
  6. ZOCOR [Concomitant]
  7. ALTACE [Concomitant]
  8. INSULIN [Concomitant]
  9. MEGACE [Concomitant]

REACTIONS (9)
  - CARDIO-RESPIRATORY ARREST [None]
  - INTESTINAL OBSTRUCTION [None]
  - MYOCARDIAL INFARCTION [None]
  - ORTHOSTATIC HYPOTENSION [None]
  - RENAL FAILURE ACUTE [None]
  - SINUS TACHYCARDIA [None]
  - SUPRAVENTRICULAR EXTRASYSTOLES [None]
  - TRANSIENT ISCHAEMIC ATTACK [None]
  - VOLVULUS [None]
